FAERS Safety Report 17420257 (Version 1)
Quarter: 2020Q1

REPORT INFORMATION
  Report Type: Spontaneous
  Country: FR (occurrence: FR)
  Receive Date: 20200214
  Receipt Date: 20200214
  Transmission Date: 20200409
  Serious: Yes (Death, Other)
  Sender: FDA-Public Use
  Company Number: FR-MYLANLABS-2020M1016030

PATIENT
  Age: 85 Year
  Sex: Male
  Weight: 77 kg

DRUGS (16)
  1. BISOCE [Concomitant]
     Active Substance: BISOPROLOL
  2. ALLOPURINOL. [Concomitant]
     Active Substance: ALLOPURINOL
     Dosage: UNK
  3. FUROSEMIDE. [Suspect]
     Active Substance: FUROSEMIDE
     Indication: PRODUCT USED FOR UNKNOWN INDICATION
     Route: 048
  4. IKOREL [Concomitant]
     Active Substance: NICORANDIL
     Dosage: UNK
  5. ESOMEPRAZOLE. [Concomitant]
     Active Substance: ESOMEPRAZOLE MAGNESIUM
     Dosage: UNK
  6. GEMCITABINE. [Suspect]
     Active Substance: GEMCITABINE
     Indication: URINARY TRACT INFECTION
     Route: 030
     Dates: start: 20190510, end: 20190519
  7. COLCHIMAX                          /01722001/ [Suspect]
     Active Substance: COLCHICINE\OPIUM\TIEMONIUM METHYLSULFATE
     Indication: ARTHRALGIA
     Dosage: 1 DOSAGE FORM
     Route: 048
     Dates: start: 20190510, end: 20190525
  8. ZYMAD [Concomitant]
     Active Substance: CHOLECALCIFEROL
  9. CORDARONE [Concomitant]
     Active Substance: AMIODARONE HYDROCHLORIDE
     Dosage: UNK
  10. PREDNISONE. [Concomitant]
     Active Substance: PREDNISONE
     Dosage: UNK
  11. TARDYFERON [Concomitant]
     Active Substance: FERROUS SULFATE
     Dosage: UNK
  12. SPECIAFOLDINE [Concomitant]
     Active Substance: FOLIC ACID
     Dosage: UNK
  13. ATORVASTATIN [Suspect]
     Active Substance: ATORVASTATIN
     Indication: PROPHYLAXIS
     Dosage: 10 MILLIGRAM
     Route: 048
  14. DOLIPRANE [Concomitant]
     Active Substance: ACETAMINOPHEN
     Dosage: UNK
  15. NORSET [Concomitant]
     Active Substance: MIRTAZAPINE
     Dosage: UNK
  16. ASPIRINE PROTECT [Concomitant]
     Active Substance: ASPIRIN
     Dosage: UNK

REACTIONS (4)
  - Pancytopenia [Not Recovered/Not Resolved]
  - Acute kidney injury [Fatal]
  - Accidental overdose [Fatal]
  - Metabolic acidosis [Not Recovered/Not Resolved]

NARRATIVE: CASE EVENT DATE: 20190525
